FAERS Safety Report 20583071 (Version 1)
Quarter: 2022Q1

REPORT INFORMATION
  Report Type: Spontaneous
  Country: US (occurrence: US)
  Receive Date: 20220311
  Receipt Date: 20220311
  Transmission Date: 20220423
  Serious: Yes (Death)
  Sender: FDA-Public Use
  Company Number: US-BAYER-2020-246186

PATIENT
  Age: 30 Year
  Sex: Male

DRUGS (5)
  1. DIPHENHYDRAMINE HYDROCHLORIDE [Interacting]
     Active Substance: DIPHENHYDRAMINE HYDROCHLORIDE
     Indication: Product used for unknown indication
     Route: 065
  2. CODEINE [Interacting]
     Active Substance: CODEINE
     Indication: Product used for unknown indication
     Route: 065
  3. ALPRAZOLAM [Interacting]
     Active Substance: ALPRAZOLAM
     Indication: Product used for unknown indication
     Route: 065
  4. ETIZOLAM [Interacting]
     Active Substance: ETIZOLAM
     Indication: Product used for unknown indication
     Route: 065
  5. MORPHINE [Interacting]
     Active Substance: MORPHINE
     Indication: Product used for unknown indication
     Route: 065

REACTIONS (7)
  - Brain oedema [Fatal]
  - Pulmonary oedema [Fatal]
  - Pulmonary congestion [Fatal]
  - Respiratory depression [Fatal]
  - Unresponsive to stimuli [Fatal]
  - Toxicity to various agents [Fatal]
  - Drug interaction [Fatal]

NARRATIVE: CASE EVENT DATE: 20181201
